FAERS Safety Report 8533414-9 (Version None)
Quarter: 2012Q3

REPORT INFORMATION
  Report Type: 
  Country: None (occurrence: None)
  Receive Date: 20120724
  Receipt Date: 20120719
  Transmission Date: 20120928
  Serious: Yes (Other)
  Sender: FDA-Public Use
  Company Number: PHHY2012JP062992

PATIENT

DRUGS (1)
  1. VOLTAREN-XR [Suspect]
     Route: 048

REACTIONS (1)
  - PLATELET COUNT DECREASED [None]
